FAERS Safety Report 21619264 (Version 1)
Quarter: 2022Q4

REPORT INFORMATION
  Report Type: Spontaneous
  Country: BR (occurrence: BR)
  Receive Date: 20221120
  Receipt Date: 20221120
  Transmission Date: 20230113
  Serious: Yes (Death, Other)
  Sender: FDA-Public Use
  Company Number: BR-STRIDES ARCOLAB LIMITED-2022SP015470

PATIENT
  Age: 47 Year
  Sex: Female

DRUGS (6)
  1. MYCOPHENOLATE MOFETIL [Suspect]
     Active Substance: MYCOPHENOLATE MOFETIL
     Indication: Aplastic anaemia
     Dosage: 360 MILLIGRAM (INTERVAL:12/12 HOUR)
     Route: 065
     Dates: start: 20160520
  2. PREDNISOLONE [Suspect]
     Active Substance: PREDNISOLONE
     Indication: Aplastic anaemia
     Dosage: UNK
     Route: 065
     Dates: end: 20160825
  3. CYCLOSPORINE [Suspect]
     Active Substance: CYCLOSPORINE
     Indication: Aplastic anaemia
     Dosage: 200 MILLIGRAM PER DAY
     Route: 065
     Dates: start: 20160608, end: 20160810
  4. CYCLOSPORINE [Suspect]
     Active Substance: CYCLOSPORINE
     Dosage: UNK PER DAY
     Route: 065
     Dates: start: 20160824, end: 20161222
  5. THYMOCYTE IMMUNE GLOBULIN NOS [Suspect]
     Active Substance: THYMOCYTE IMMUNE GLOBULIN NOS
     Indication: Aplastic anaemia
     Dosage: 2.5 MILLIGRAM/KILOGRAM PER DAY
     Route: 065
     Dates: start: 20160715, end: 20160719
  6. DANAZOL [Suspect]
     Active Substance: DANAZOL
     Indication: Aplastic anaemia
     Dosage: 400 MILLIGRAM PER DAY
     Route: 065
     Dates: start: 20170201

REACTIONS (7)
  - Enterocolitis [Fatal]
  - Febrile neutropenia [Fatal]
  - Pneumonia [Fatal]
  - Septic shock [Fatal]
  - Bacterial infection [Fatal]
  - Drug ineffective [Unknown]
  - Off label use [Unknown]

NARRATIVE: CASE EVENT DATE: 20170201
